FAERS Safety Report 25929051 (Version 1)
Quarter: 2025Q4

REPORT INFORMATION
  Report Type: Spontaneous
  Country: JP (occurrence: JP)
  Receive Date: 20251016
  Receipt Date: 20251016
  Transmission Date: 20260118
  Serious: Yes (Other)
  Sender: RANBAXY
  Company Number: JP-SUN PHARMACEUTICAL INDUSTRIES LTD-2025RR-531986

PATIENT
  Age: 29 Year
  Sex: Female

DRUGS (8)
  1. NIFEDIPINE [Suspect]
     Active Substance: NIFEDIPINE
     Indication: Cushing^s syndrome
     Dosage: 80 MILLIGRAM
     Route: 065
  2. INSULIN NOS [Suspect]
     Active Substance: INSULIN NOS
     Indication: Diabetes insipidus
     Dosage: BASAL-BOLUS INSULIN THERAPY
     Route: 065
  3. DESMOPRESSIN [Suspect]
     Active Substance: DESMOPRESSIN
     Indication: Cushing^s syndrome
     Dosage: 240 MILLIGRAM
     Route: 048
  4. NICARDIPINE [Suspect]
     Active Substance: NICARDIPINE
     Indication: Cushing^s syndrome
     Dosage: 60 MILLIGRAM
     Route: 065
  5. METHYLDOPA [Suspect]
     Active Substance: METHYLDOPA
     Indication: Cushing^s syndrome
     Dosage: 750 MILLIGRAM
     Route: 065
  6. POTASSIUM GLUCONATE [Suspect]
     Active Substance: POTASSIUM GLUCONATE
     Indication: Polyuria
     Dosage: 7.5 MILLIGRAM
     Route: 065
  7. POTASSIUM CHLORIDE [Suspect]
     Active Substance: POTASSIUM CHLORIDE
     Indication: Polyuria
     Dosage: 80 MEGABECQUEREL
     Route: 065
  8. METYRAPONE [Suspect]
     Active Substance: METYRAPONE
     Indication: Infection susceptibility increased
     Dosage: 500 MILLIGRAM
     Route: 065

REACTIONS (4)
  - Premature delivery [Unknown]
  - Maternal exposure during pregnancy [Unknown]
  - Caesarean section [Recovered/Resolved]
  - Pre-eclampsia [Recovered/Resolved]
